FAERS Safety Report 16832872 (Version 1)
Quarter: 2019Q3

REPORT INFORMATION
  Report Type: Report from Study
  Country: IT (occurrence: IT)
  Receive Date: 20190920
  Receipt Date: 20190920
  Transmission Date: 20191005
  Serious: Yes (Other)
  Sender: FDA-Public Use
  Company Number: IT-ROCHE-2413221

PATIENT

DRUGS (2)
  1. BENDAMUSTINE [Suspect]
     Active Substance: BENDAMUSTINE
     Indication: CHEMOTHERAPY
     Route: 065
  2. RITUXIMAB. [Suspect]
     Active Substance: RITUXIMAB
     Indication: CHEMOTHERAPY
     Route: 065

REACTIONS (13)
  - Fungal skin infection [Unknown]
  - Erythema multiforme [Unknown]
  - Corynebacterium infection [Unknown]
  - Superinfection bacterial [Unknown]
  - Rash maculo-papular [Unknown]
  - Folliculitis [Unknown]
  - Herpes simplex [Unknown]
  - Genital candidiasis [Unknown]
  - Cellulitis [Unknown]
  - Intertrigo [Unknown]
  - Varicella zoster virus infection [Unknown]
  - Eruptive pseudoangiomatosis [Unknown]
  - Papilloma viral infection [Unknown]
